FAERS Safety Report 9543295 (Version 3)
Quarter: 2013Q4

REPORT INFORMATION
  Report Type: Report from Study
  Country: IL (occurrence: IL)
  Receive Date: 20130923
  Receipt Date: 20131015
  Transmission Date: 20140711
  Serious: Yes (Other)
  Sender: FDA-Public Use
  Company Number: PHHY2012IL075363

PATIENT
  Age: 70 Year
  Sex: Female

DRUGS (4)
  1. SANDOSTATIN LAR [Suspect]
     Indication: PANCREATIC NEUROENDOCRINE TUMOUR
     Dosage: 40 MG, EVERY 28 DAYS (Q 4 W)
     Dates: start: 20100318
  2. SANDOSTATIN LAR [Suspect]
     Dosage: 40 MG, EVERY 28 DAYS (Q 4 W)
     Dates: start: 20120830, end: 20130410
  3. SANDOSTATIN LAR [Suspect]
     Dosage: 40 MG, EVERY 28 DAYS (Q 4 W)
     Dates: start: 20130915
  4. INTERFERON [Concomitant]
     Dosage: UNK UKN, UNK

REACTIONS (5)
  - General physical health deterioration [Unknown]
  - Malignant neoplasm progression [Not Recovered/Not Resolved]
  - Movement disorder [Unknown]
  - Back pain [Unknown]
  - Pain [Unknown]
